FAERS Safety Report 6523118-6 (Version None)
Quarter: 2009Q4

REPORT INFORMATION
  Report Type: 
  Country: None (occurrence: None)
  Receive Date: 20091222
  Receipt Date: 20091214
  Transmission Date: 20100525
  Serious: Yes (Hospitalization)
  Sender: FDA-Public Use
  Company Number: 232610J09USA

PATIENT
  Age: 67 Year
  Sex: Female
  Weight: 57 kg

DRUGS (4)
  1. REBIF [Suspect]
     Indication: MULTIPLE SCLEROSIS
     Dosage: 44 MCG, 3 IN 1 WEEKS, SUBCUTANEOUS
     Route: 058
     Dates: start: 20041006
  2. SIMVASTATIIN (SIMVASTATIN) [Concomitant]
  3. NUVIGIL (ALL OTHER THERAPEUTIC PRODUCTS) [Concomitant]
  4. DIAZEPAM [Concomitant]

REACTIONS (2)
  - FALL [None]
  - HIP FRACTURE [None]
